FAERS Safety Report 7315496-5 (Version None)
Quarter: 2011Q1

REPORT INFORMATION
  Report Type: 
  Country: None (occurrence: None)
  Receive Date: 20110218
  Receipt Date: 20110218
  Transmission Date: 20110831
  Serious: Yes (Hospitalization)
  Sender: FDA-Public Use
  Company Number: None

PATIENT
  Age: 33 Year
  Sex: Male
  Weight: 76 kg

DRUGS (2)
  1. DILANTIN [Suspect]
     Indication: EPILEPSY
     Dosage: 400MG BID PO CHRONIC W/RECENT FORMULATION CHANGE
     Route: 048
  2. DILAUDID [Concomitant]

REACTIONS (2)
  - PRODUCT FORMULATION ISSUE [None]
  - TOXICITY TO VARIOUS AGENTS [None]
